FAERS Safety Report 25607951 (Version 2)
Quarter: 2025Q3

REPORT INFORMATION
  Report Type: Report from Study
  Country: US (occurrence: US)
  Receive Date: 20250725
  Receipt Date: 20250819
  Transmission Date: 20251020
  Serious: Yes (Hospitalization)
  Sender: ALEXION PHARMACEUTICALS
  Company Number: US-AstraZeneca-CH-00914139A

PATIENT
  Sex: Female

DRUGS (11)
  1. OSIMERTINIB [Suspect]
     Active Substance: OSIMERTINIB
     Indication: Non-small cell lung cancer
     Dosage: 80 MILLIGRAM, QD
  2. METOPROLOL TARTRATE [Suspect]
     Active Substance: METOPROLOL TARTRATE
     Route: 065
  3. POTASSIUM [Concomitant]
     Active Substance: POTASSIUM
  4. ELIQUIS [Concomitant]
     Active Substance: APIXABAN
  5. LORATADINE [Concomitant]
     Active Substance: LORATADINE
  6. LEVOTHYROXINE [Concomitant]
     Active Substance: LEVOTHYROXINE
  7. EZETIMIBE [Concomitant]
     Active Substance: EZETIMIBE
  8. FISH OIL [Concomitant]
     Active Substance: FISH OIL
  9. ROSUVASTATIN [Concomitant]
     Active Substance: ROSUVASTATIN
  10. VITAMINS [Concomitant]
     Active Substance: VITAMINS
  11. METOPROLOL [Concomitant]
     Active Substance: METOPROLOL

REACTIONS (4)
  - Hypotension [Not Recovered/Not Resolved]
  - Diverticulitis [Not Recovered/Not Resolved]
  - Fatigue [Not Recovered/Not Resolved]
  - Weight increased [Not Recovered/Not Resolved]
